FAERS Safety Report 4448720-7 (Version None)
Quarter: 2004Q3

REPORT INFORMATION
  Report Type: 
  Country: None (occurrence: None)
  Receive Date: 20040909
  Receipt Date: 20040824
  Transmission Date: 20050211
  Serious: Yes (Hospitalization)
  Sender: FDA-Public Use
  Company Number: 2004-BP-07287AU

PATIENT
  Age: 77 Year
  Sex: Female

DRUGS (7)
  1. PERSANTIN [Suspect]
     Indication: TRANSIENT ISCHAEMIC ATTACK
     Dosage: 200 MG (200 MG, 200 MG DAILY)
     Route: 048
     Dates: start: 20030101
  2. ATORVASTATIN (ATORVASTATIN) [Concomitant]
  3. OMEPRAZOLE [Concomitant]
  4. CISAPRIDE (CISAFRIDE) [Concomitant]
  5. BETAHISTINE (BETAHISTINE) [Concomitant]
  6. ASPIRIN [Concomitant]
  7. ATENOLOL [Concomitant]

REACTIONS (3)
  - BLOOD PRESSURE INCREASED [None]
  - DIZZINESS [None]
  - HEADACHE [None]
